FAERS Safety Report 8397433-8 (Version None)
Quarter: 2012Q2

REPORT INFORMATION
  Report Type: 
  Country: None (occurrence: None)
  Receive Date: 20120531
  Receipt Date: 20120522
  Transmission Date: 20120825
  Serious: Yes (Hospitalization)
  Sender: FDA-Public Use
  Company Number: US-PAR PHARMACEUTICAL, INC-2012SCPR004397

PATIENT

DRUGS (4)
  1. HYDRALAZINE HCL [Suspect]
     Indication: ASCITES
  2. FUROSEMIDE [Concomitant]
     Indication: ASCITES
  3. HYDRALAZINE HCL [Suspect]
     Indication: PORTAL HYPERTENSION
     Dosage: 25 MG, TID
     Route: 065
  4. FUROSEMIDE [Concomitant]
     Indication: PORTAL HYPERTENSION
     Dosage: UNK, UNKNOWN
     Route: 065

REACTIONS (2)
  - LUPUS-LIKE SYNDROME [None]
  - ACUTE FEBRILE NEUTROPHILIC DERMATOSIS [None]
